FAERS Safety Report 8267262-4 (Version None)
Quarter: 2012Q2

REPORT INFORMATION
  Report Type: 
  Country: None (occurrence: None)
  Receive Date: 20120404
  Receipt Date: 20120319
  Transmission Date: 20120825
  Serious: Yes (Hospitalization, Other)
  Sender: FDA-Public Use
  Company Number: 2012MA002123

PATIENT
  Age: 47 Year
  Sex: Female

DRUGS (8)
  1. CLOZARIL [Suspect]
     Indication: SCHIZOPHRENIA
     Dosage: 100 MG;P PO
     Route: 048
     Dates: start: 20020212
  2. PIPORTIL DEPOT [Concomitant]
  3. FLUPENTIXOL [Concomitant]
  4. QUETIAPINE [Concomitant]
  5. ARIPIPRAZOLE [Concomitant]
  6. FEVERALL [Suspect]
     Indication: PRODUCT USED FOR UNKNOWN INDICATION
  7. AMISULPRIDE [Concomitant]
  8. OLANZAPINE [Concomitant]

REACTIONS (3)
  - ELECTROCARDIOGRAM ABNORMAL [None]
  - HYPERTENSION [None]
  - OVERDOSE [None]
